FAERS Safety Report 6116170-3 (Version None)
Quarter: 2009Q1

REPORT INFORMATION
  Report Type: 
  Country: None (occurrence: None)
  Receive Date: 20090314
  Receipt Date: 20081201
  Transmission Date: 20090719
  Serious: No
  Sender: FDA-Public Use
  Company Number: US-ABBOTT-08P-163-0490862-00

PATIENT
  Sex: Female
  Weight: 91.254 kg

DRUGS (3)
  1. HUMIRA [Suspect]
     Indication: RHEUMATOID ARTHRITIS
     Dates: start: 20081114
  2. ESOMEPRAZOLE MAGNESIUM [Concomitant]
     Indication: GASTROOESOPHAGEAL REFLUX DISEASE
     Dosage: NOT REPORTED
  3. LOSARTAN POTASSIUM [Concomitant]
     Indication: HYPERTENSION
     Dosage: NOT REPORTED

REACTIONS (3)
  - DRY SKIN [None]
  - URINE ABNORMALITY [None]
  - URINE ODOUR ABNORMAL [None]
